FAERS Safety Report 6951140-4 (Version None)
Quarter: 2010Q3

REPORT INFORMATION
  Report Type: 
  Country: None (occurrence: None)
  Receive Date: 20100828
  Receipt Date: 20100304
  Transmission Date: 20110219
  Serious: No
  Sender: FDA-Public Use
  Company Number: US-ABBOTT-10P-163-0631683-00

PATIENT
  Sex: Male
  Weight: 72.64 kg

DRUGS (7)
  1. NIASPAN [Suspect]
     Indication: BLOOD TRIGLYCERIDES INCREASED
     Route: 048
     Dates: start: 20100304
  2. ASPIRIN [Concomitant]
     Indication: CARDIAC DISORDER
     Route: 048
  3. ASPIRIN [Concomitant]
  4. COZAAR [Concomitant]
     Indication: HYPERTENSION
     Route: 048
  5. CARVEDILOL [Concomitant]
     Indication: HYPERTENSION
     Route: 048
  6. CARVEDILOL [Concomitant]
     Indication: MYOCARDIAL INFARCTION
  7. LIPITOR [Concomitant]
     Indication: BLOOD CHOLESTEROL INCREASED
     Route: 048

REACTIONS (6)
  - DYSPHAGIA [None]
  - ERYTHEMA [None]
  - FEELING HOT [None]
  - GINGIVAL SWELLING [None]
  - MUSCLE TIGHTNESS [None]
  - MUSCULOSKELETAL STIFFNESS [None]
